FAERS Safety Report 7802154-3 (Version None)
Quarter: 2011Q4

REPORT INFORMATION
  Report Type: 
  Country: None (occurrence: None)
  Receive Date: 20111007
  Receipt Date: 20110926
  Transmission Date: 20120403
  Serious: Yes (Hospitalization)
  Sender: FDA-Public Use
  Company Number: GB-JNJFOC-20100107275

PATIENT
  Sex: Female
  Weight: 51.7 kg

DRUGS (3)
  1. FOLIC ACID [Concomitant]
     Dates: start: 20090401
  2. METHOTREXATE [Concomitant]
     Dates: start: 20090403
  3. REMICADE [Suspect]
     Indication: PSORIASIS
     Dosage: DOSE IN SERIES=5
     Route: 042
     Dates: start: 20081230, end: 20090721

REACTIONS (3)
  - PSORIASIS [None]
  - SYSTEMIC LUPUS ERYTHEMATOSUS [None]
  - LUPUS-LIKE SYNDROME [None]
